FAERS Safety Report 22009309 (Version 1)
Quarter: 2023Q1

REPORT INFORMATION
  Report Type: Spontaneous
  Country: US (occurrence: None)
  Receive Date: 20230220
  Receipt Date: 20230220
  Transmission Date: 20230418
  Serious: No
  Sender: FDA-Public Use
  Company Number: US-Merck Healthcare KGaA-9384520

PATIENT
  Sex: Female

DRUGS (1)
  1. REBIF [Suspect]
     Active Substance: INTERFERON BETA-1A
     Indication: Product used for unknown indication

REACTIONS (1)
  - Drug intolerance [Unknown]
